FAERS Safety Report 8252476-X (Version None)
Quarter: 2012Q2

REPORT INFORMATION
  Report Type: 
  Country: None (occurrence: None)
  Receive Date: 20120402
  Receipt Date: 20110721
  Transmission Date: 20120825
  Serious: No
  Sender: FDA-Public Use
  Company Number: US-ABBOTT-11P-163-0841058-00

PATIENT
  Sex: Male
  Weight: 129.39 kg

DRUGS (3)
  1. ANDROGEL [Suspect]
     Indication: BLOOD TESTOSTERONE DECREASED
     Dosage: 2.5 G
     Route: 061
     Dates: start: 20110528, end: 20110718
  2. LISINOPRIL [Concomitant]
     Indication: HYPERTENSION
  3. CIPROFLOXACIN [Concomitant]
     Indication: DIABETIC ULCER

REACTIONS (3)
  - FATIGUE [None]
  - LOSS OF LIBIDO [None]
  - BLOOD TESTOSTERONE ABNORMAL [None]
